FAERS Safety Report 7226310-0 (Version None)
Quarter: 2011Q1

REPORT INFORMATION
  Report Type: 
  Country: None (occurrence: None)
  Receive Date: 20110114
  Receipt Date: 20110107
  Transmission Date: 20110831
  Serious: Yes (Hospitalization, Other)
  Sender: FDA-Public Use
  Company Number: PHHY2010JP88044

PATIENT
  Age: 55 Year
  Sex: Female

DRUGS (3)
  1. PREDNISOLONE [Concomitant]
     Indication: POLYMYOSITIS
     Dosage: 48 MG PER DAY
     Dates: start: 20100401
  2. CYCLOSPORINE [Suspect]
     Indication: POLYMYOSITIS
     Dosage: UNK
     Dates: start: 20100101, end: 20100101
  3. METHOTREXATE [Concomitant]
     Indication: POLYMYOSITIS
     Dosage: 6 MG/WEEK

REACTIONS (8)
  - HAEMOLYTIC ANAEMIA [None]
  - THROMBOTIC THROMBOCYTOPENIC PURPURA [None]
  - BLOOD CREATINE PHOSPHOKINASE INCREASED [None]
  - MYOSITIS [None]
  - PYREXIA [None]
  - RENAL IMPAIRMENT [None]
  - ASTHENIA [None]
  - PANCREATITIS ACUTE [None]
